FAERS Safety Report 5008058-6 (Version None)
Quarter: 2006Q2

REPORT INFORMATION
  Report Type: 
  Country: None (occurrence: None)
  Receive Date: 20060404
  Receipt Date: 20050606
  Transmission Date: 20061013
  Serious: Yes (Other)
  Sender: FDA-Public Use
  Company Number: 2005087313

PATIENT
  Sex: Female

DRUGS (3)
  1. GEODON [Suspect]
     Indication: SCHIZOAFFECTIVE DISORDER
     Dosage: 40 MG (20 MG, 2 IN 1 D), ORAL
     Route: 048
     Dates: start: 20050514
  2. LORAZEPAM [Suspect]
     Indication: SLEEP DISORDER
     Dosage: 1 MG (1 IN 1 D), ORAL
     Route: 048
     Dates: start: 20050514
  3. CLONOPIN [Concomitant]

REACTIONS (1)
  - BLOOD CREATINE PHOSPHOKINASE INCREASED [None]
